FAERS Safety Report 8392411-7 (Version None)
Quarter: 2012Q2

REPORT INFORMATION
  Report Type: 
  Country: None (occurrence: None)
  Receive Date: 20120529
  Receipt Date: 20120514
  Transmission Date: 20120825
  Serious: Yes (Hospitalization)
  Sender: FDA-Public Use
  Company Number: US-JUTA GMBH-2012-08474

PATIENT
  Age: 39 Year
  Sex: Male

DRUGS (5)
  1. TEMAZEPAM [Suspect]
     Indication: PRODUCT USED FOR UNKNOWN INDICATION
     Dosage: 300 MG, QPM
     Route: 048
  2. DOXYCYCLINE [Suspect]
     Indication: PRODUCT USED FOR UNKNOWN INDICATION
     Dosage: 100 MG, BID
     Route: 048
  3. VALPROATE SODIUM [Suspect]
     Indication: PRODUCT USED FOR UNKNOWN INDICATION
     Dosage: 250 MG, TID
     Route: 048
  4. ARIPIPRAZOLE [Suspect]
     Indication: PSYCHOTIC DISORDER
     Dosage: 7.5 MG, QHS
     Route: 048
  5. ARIPIPRAZOLE [Suspect]
     Dosage: 2.5 MG, BID
     Route: 048

REACTIONS (2)
  - CATATONIA [None]
  - BLOOD CREATINE PHOSPHOKINASE INCREASED [None]
